FAERS Safety Report 21118338 (Version 1)
Quarter: 2022Q3

REPORT INFORMATION
  Report Type: Spontaneous
  Country: US (occurrence: None)
  Receive Date: 20220721
  Receipt Date: 20220721
  Transmission Date: 20221026
  Serious: Yes (Hospitalization)
  Sender: FDA-Public Use
  Company Number: None

PATIENT
  Sex: Female

DRUGS (10)
  1. PROCRIT [Suspect]
     Active Substance: ERYTHROPOIETIN
     Indication: Cardiac disorder
     Dosage: OTHER STRENGTH : 10,000 U/ML MDV21 ;?OTHER QUANTITY : 10000 UNIT/ML;?FREQUENCY : AS DIRECTED;?
     Route: 058
  2. AMLODIPINE [Concomitant]
  3. CALCITRIOL [Concomitant]
     Active Substance: CALCITRIOL
  4. CLONIDINE [Concomitant]
     Active Substance: CLONIDINE
  5. CLOPIDOGREL [Concomitant]
     Active Substance: CLOPIDOGREL BISULFATE
  6. FLUCONAZOLE [Concomitant]
     Active Substance: FLUCONAZOLE
  7. FUROSEMIDE [Concomitant]
     Active Substance: FUROSEMIDE
  8. LABETALOL [Concomitant]
     Active Substance: LABETALOL\LABETALOL HYDROCHLORIDE
  9. LEVOTHYROXINE [Concomitant]
     Active Substance: LEVOTHYROXINE
  10. OZEMPIC INJ [Concomitant]

REACTIONS (1)
  - Knee operation [None]
